FAERS Safety Report 15922266 (Version 1)
Quarter: 2019Q1

REPORT INFORMATION
  Report Type: Spontaneous
  Country: US (occurrence: US)
  Receive Date: 20190205
  Receipt Date: 20190205
  Transmission Date: 20190417
  Serious: Yes (Other)
  Sender: FDA-Public Use
  Company Number: None

PATIENT
  Age: 63 Year
  Sex: Male
  Weight: 144 kg

DRUGS (8)
  1. DULOXETINE DR 20MG CAPSULES [Suspect]
     Active Substance: DULOXETINE
     Indication: DEPRESSION
     Dosage: ?          QUANTITY:90 CAPSULE(S);?
     Route: 048
     Dates: start: 20190124
  2. NAC [Concomitant]
  3. VITAMIN D [Concomitant]
     Active Substance: CHOLECALCIFEROL
  4. ASA [Concomitant]
     Active Substance: ASPIRIN
  5. MAGNESIUM [Concomitant]
     Active Substance: MAGNESIUM
  6. ATORVASTATIN [Concomitant]
     Active Substance: ATORVASTATIN
  7. AMLODIPINE [Concomitant]
     Active Substance: AMLODIPINE BESYLATE
  8. COQ10 [Concomitant]
     Active Substance: UBIDECARENONE

REACTIONS (2)
  - Insurance issue [None]
  - Sedation [None]

NARRATIVE: CASE EVENT DATE: 20190204
